FAERS Safety Report 6763777-6 (Version None)
Quarter: 2010Q2

REPORT INFORMATION
  Report Type: 
  Country: None (occurrence: None)
  Receive Date: 20100610
  Receipt Date: 20100601
  Transmission Date: 20101027
  Serious: Yes (Hospitalization, Other)
  Sender: FDA-Public Use
  Company Number: US-ROCHE-707476

PATIENT
  Sex: Male

DRUGS (3)
  1. PEGINTERFERON ALFA-2A [Suspect]
     Dosage: FORM: PRE-FILLED SYRINGE
     Route: 065
     Dates: start: 20100507
  2. RIBAVIRIN [Suspect]
     Route: 065
     Dates: start: 20100507
  3. XANAX [Concomitant]
     Indication: ANXIETY
     Dates: start: 20050101

REACTIONS (4)
  - INCOHERENT [None]
  - LOSS OF CONSCIOUSNESS [None]
  - MEDICATION ERROR [None]
  - MUSCULOSKELETAL STIFFNESS [None]
